FAERS Safety Report 16897278 (Version 1)
Quarter: 2019Q4

REPORT INFORMATION
  Report Type: Spontaneous
  Country: FR (occurrence: FR)
  Receive Date: 20191009
  Receipt Date: 20191009
  Transmission Date: 20200122
  Serious: Yes (Hospitalization, Other)
  Sender: FDA-Public Use
  Company Number: FR-BRISTOL-MYERS SQUIBB COMPANY-BMS-2019-095590

PATIENT
  Age: 87 Year
  Sex: Male
  Weight: 59 kg

DRUGS (6)
  1. ELIQUIS [Suspect]
     Active Substance: APIXABAN
     Indication: CEREBROVASCULAR ACCIDENT PROPHYLAXIS
     Dosage: 5 MILLIGRAM, DAILY
     Route: 048
     Dates: start: 20190601
  2. CORDARONE [Suspect]
     Active Substance: AMIODARONE HYDROCHLORIDE
     Indication: ATRIAL FIBRILLATION
     Dosage: 200 MILLIGRAM, QD
     Route: 048
     Dates: start: 20190723
  3. ENTECAVIR BIOGARAN [Suspect]
     Active Substance: ENTECAVIR
     Indication: ANTIVIRAL PROPHYLAXIS
     Dosage: 0.5 MILLIGRAM, QD
     Route: 065
     Dates: start: 20190701, end: 20190831
  4. TRUXIMA [Suspect]
     Active Substance: RITUXIMAB-ABBS
     Indication: NON-HODGKIN^S LYMPHOMA
     Route: 042
     Dates: start: 20190701, end: 20190831
  5. VALACYCLOVIR [Suspect]
     Active Substance: VALACYCLOVIR HYDROCHLORIDE
     Indication: ANTIVIRAL PROPHYLAXIS
     Dosage: 500 MILLIGRAM, QD
     Route: 048
     Dates: start: 20190701, end: 20190831
  6. CELLTOP [Suspect]
     Active Substance: ETOPOSIDE
     Indication: NON-HODGKIN^S LYMPHOMA
     Dosage: 200 MG LES LENDEMAINS DE TRAITEMENT PAR RITUXIMAB
     Route: 048
     Dates: start: 20190701, end: 20190831

REACTIONS (1)
  - Interstitial lung disease [Not Recovered/Not Resolved]

NARRATIVE: CASE EVENT DATE: 20190905
